FAERS Safety Report 15000469 (Version 2)
Quarter: 2018Q2

REPORT INFORMATION
  Report Type: Spontaneous
  Country: ZA (occurrence: ZA)
  Receive Date: 20180612
  Receipt Date: 20180613
  Transmission Date: 20180711
  Serious: Yes (Hospitalization)
  Sender: FDA-Public Use
  Company Number: ZA-PFIZER INC-2018238510

PATIENT
  Age: 86 Year
  Sex: Female

DRUGS (7)
  1. ALTOSEC /00661201/ [Suspect]
     Active Substance: OMEPRAZOLE
     Dosage: UNK
  2. CIPLA-SIMVASTATIN [Suspect]
     Active Substance: SIMVASTATIN
     Dosage: UNK
  3. ECOTRIN [Suspect]
     Active Substance: ASPIRIN
     Dosage: UNK
  4. XANOR SR [Suspect]
     Active Substance: ALPRAZOLAM
     Dosage: UNK
  5. RIDAQ [Suspect]
     Active Substance: HYDROCHLOROTHIAZIDE
     Dosage: UNK
  6. CIPLAVASC [Suspect]
     Active Substance: AMLODIPINE BESYLATE
     Dosage: UNK
  7. PURATA [Suspect]
     Active Substance: OXAZEPAM
     Dosage: UNK

REACTIONS (1)
  - Hypertension [Unknown]
